FAERS Safety Report 8059520-3 (Version None)
Quarter: 2012Q1

REPORT INFORMATION
  Report Type: 
  Country: None (occurrence: None)
  Receive Date: 20120119
  Receipt Date: 20120119
  Transmission Date: 20120608
  Serious: Yes (Hospitalization)
  Sender: FDA-Public Use
  Company Number: None

PATIENT
  Sex: Female

DRUGS (1)
  1. REBIF [Suspect]
     Indication: MULTIPLE SCLEROSIS
     Dosage: 44MCG TIW SQ
     Route: 058
     Dates: start: 20111001, end: 20120109

REACTIONS (4)
  - URTICARIA [None]
  - INJECTION SITE ERYTHEMA [None]
  - SKIN LESION [None]
  - GAIT DISTURBANCE [None]
